FAERS Safety Report 5246407-4 (Version None)
Quarter: 2007Q1

REPORT INFORMATION
  Report Type: 
  Country: None (occurrence: None)
  Receive Date: 20061201
  Receipt Date: 20060824
  Transmission Date: 20070707
  Serious: No
  Sender: FDA-Public Use
  Company Number: 2006PV020074

PATIENT
  Age: 64 Year
  Sex: Male
  Weight: 119.296 kg

DRUGS (6)
  1. BYETTA [Suspect]
     Indication: DIABETES MELLITUS NON-INSULIN-DEPENDENT
     Dosage: 5 MCG; BID; SC
     Route: 058
     Dates: start: 20060821
  2. HUMALOG [Concomitant]
  3. GLUCOVANCE [Concomitant]
  4. ACTOS [Concomitant]
  5. POTASSIUM ACETATE [Concomitant]
  6. FUROSEMIDE [Concomitant]

REACTIONS (3)
  - BLOOD GLUCOSE INCREASED [None]
  - EARLY SATIETY [None]
  - WEIGHT DECREASED [None]
